FAERS Safety Report 19944047 (Version 1)
Quarter: 2021Q4

REPORT INFORMATION
  Report Type: Spontaneous
  Country: US (occurrence: US)
  Receive Date: 20211008
  Receipt Date: 20211008
  Transmission Date: 20220303
  Serious: No
  Sender: FDA-Public Use
  Company Number: None

PATIENT
  Age: 70 Year
  Sex: Female

DRUGS (2)
  1. TACROLIMUS [Suspect]
     Active Substance: TACROLIMUS
     Indication: Pulmonary arterial hypertension
     Dosage: TAKE 0.5 MG ( 1 CAPSULE) BY MOUTH EVERY MORNING  AND 1 MG ( 2 CAPSULES)  AT BEDTIME
     Route: 048
  2. TACROLIMUS [Suspect]
     Active Substance: TACROLIMUS
     Route: 048
     Dates: start: 20210712

REACTIONS (2)
  - Blood sodium decreased [None]
  - Wrong schedule [None]

NARRATIVE: CASE EVENT DATE: 20210820
